FAERS Safety Report 25649692 (Version 1)
Quarter: 2025Q3

REPORT INFORMATION
  Report Type: Spontaneous
  Country: CN (occurrence: CN)
  Receive Date: 20250806
  Receipt Date: 20250806
  Transmission Date: 20251021
  Serious: Yes (Other)
  Sender: STRIDES
  Company Number: CN-STRIDES ARCOLAB LIMITED-2025SP009547

PATIENT
  Age: 6 Year
  Sex: Female

DRUGS (13)
  1. PREDNISOLONE [Suspect]
     Active Substance: PREDNISOLONE
     Indication: Haemolytic anaemia
     Route: 065
     Dates: start: 2021
  2. PREDNISOLONE [Suspect]
     Active Substance: PREDNISOLONE
     Indication: Encephalitis autoimmune
     Route: 048
  3. PREDNISOLONE [Suspect]
     Active Substance: PREDNISOLONE
     Route: 048
  4. Immunoglobulin [Concomitant]
     Indication: Encephalitis autoimmune
     Route: 065
  5. Immunoglobulin [Concomitant]
     Route: 065
  6. METHYLPREDNISOLONE [Concomitant]
     Active Substance: METHYLPREDNISOLONE
     Indication: Encephalitis autoimmune
     Route: 065
  7. METHYLPREDNISOLONE [Concomitant]
     Active Substance: METHYLPREDNISOLONE
     Route: 065
  8. METHYLPREDNISOLONE [Concomitant]
     Active Substance: METHYLPREDNISOLONE
     Route: 065
  9. METHYLPREDNISOLONE [Concomitant]
     Active Substance: METHYLPREDNISOLONE
     Route: 065
  10. METHYLPREDNISOLONE [Concomitant]
     Active Substance: METHYLPREDNISOLONE
     Route: 065
  11. METHYLPREDNISOLONE [Concomitant]
     Active Substance: METHYLPREDNISOLONE
     Route: 065
  12. METHYLPREDNISOLONE [Concomitant]
     Active Substance: METHYLPREDNISOLONE
     Route: 065
  13. METHYLPREDNISOLONE [Concomitant]
     Active Substance: METHYLPREDNISOLONE
     Route: 065

REACTIONS (9)
  - Choking [Unknown]
  - Therapy partial responder [Unknown]
  - Gait disturbance [Unknown]
  - Dysarthria [Unknown]
  - Pain in extremity [Unknown]
  - Macule [Unknown]
  - Extensor plantar response [Unknown]
  - Vertigo [Unknown]
  - Off label use [Unknown]

NARRATIVE: CASE EVENT DATE: 20210601
